FAERS Safety Report 5353399-6 (Version None)
Quarter: 2007Q2

REPORT INFORMATION
  Report Type: 
  Country: None (occurrence: None)
  Receive Date: 20070612
  Receipt Date: 20070531
  Transmission Date: 20071010
  Serious: Yes (Hospitalization)
  Sender: FDA-Public Use
  Company Number: PHBS2007JP08731

PATIENT
  Age: 56 Year
  Sex: Female
  Weight: 35 kg

DRUGS (3)
  1. TEGRETOL [Suspect]
     Indication: EPILEPSY
     Route: 048
  2. PHENOBARBITAL TAB [Concomitant]
  3. VALPROATE SODIUM [Concomitant]

REACTIONS (2)
  - COLITIS ULCERATIVE [None]
  - HAEMATOCHEZIA [None]
